FAERS Safety Report 6722082-4 (Version None)
Quarter: 2010Q2

REPORT INFORMATION
  Report Type: 
  Country: None (occurrence: None)
  Receive Date: 20100512
  Receipt Date: 20100504
  Transmission Date: 20101027
  Serious: Yes (Other)
  Sender: FDA-Public Use
  Company Number: US-ELI_LILLY_AND_COMPANY-US201003007259

PATIENT
  Sex: Male

DRUGS (6)
  1. HUMALOG [Suspect]
     Dosage: UNK, UNK
     Route: 058
  2. PREDNISONE [Concomitant]
  3. DARVOCET-N 100 [Concomitant]
     Dosage: UNK, EVERY 6 HRS
  4. FLURAZEPAM [Concomitant]
     Indication: SLEEP DISORDER
     Dosage: 15 MG, EACH EVENING
  5. AVODART [Concomitant]
     Dosage: 0.5 MG, DAILY (1/D)
  6. VITAMIN D [Concomitant]
     Dosage: 50000 U, WEEKLY (1/W)

REACTIONS (6)
  - BLOOD GLUCOSE INCREASED [None]
  - DRUG INEFFECTIVE [None]
  - FEAR [None]
  - INFECTION [None]
  - MALAISE [None]
  - PULMONARY OEDEMA [None]
